FAERS Safety Report 7545402-X (Version None)
Quarter: 2011Q2

REPORT INFORMATION
  Report Type: 
  Country: None (occurrence: None)
  Receive Date: 20110613
  Receipt Date: 20110613
  Transmission Date: 20111010
  Serious: Yes (Life-Threatening)
  Sender: FDA-Public Use
  Company Number: None

PATIENT
  Sex: Male
  Weight: 87.6 kg

DRUGS (9)
  1. COLACE [Concomitant]
  2. AV-951 (TIVOZANIB) [Suspect]
     Indication: COLORECTAL CANCER
     Dosage: 1 MG PO QD
     Route: 048
     Dates: start: 20110513, end: 20110526
  3. OXYCODONE HCL [Concomitant]
  4. ATIVAN [Concomitant]
  5. SENNA [Concomitant]
  6. RAD001 (EVEROLIMUS) [Suspect]
     Indication: COLORECTAL CANCER
     Dosage: 10 MG PO QD
     Route: 048
     Dates: start: 20110513, end: 20110526
  7. COMPAZINE [Concomitant]
  8. LACTULOSE SUSPENSION [Concomitant]
  9. MS CONTIN [Concomitant]

REACTIONS (1)
  - THROMBOCYTOPENIA [None]
